FAERS Safety Report 4793706-6 (Version None)
Quarter: 2005Q4

REPORT INFORMATION
  Report Type: 
  Country: None (occurrence: None)
  Receive Date: 20051011
  Receipt Date: 20051003
  Transmission Date: 20060501
  Serious: Yes (Other)
  Sender: FDA-Public Use
  Company Number: US-JNJFOC-20051001125

PATIENT
  Sex: Male
  Weight: 120.2 kg

DRUGS (1)
  1. DURAGESIC-100 [Suspect]
     Route: 062

REACTIONS (5)
  - ADRENOCORTICAL INSUFFICIENCY CHRONIC [None]
  - DRUG WITHDRAWAL SYNDROME [None]
  - GASTRIC STENOSIS [None]
  - OBESITY SURGERY [None]
  - THERAPEUTIC RESPONSE DECREASED [None]
